FAERS Safety Report 8708243 (Version 2)
Quarter: 2012Q4

REPORT INFORMATION
  Report Type: Report from Study
  Country: US (occurrence: US)
  Receive Date: 20120806
  Receipt Date: 20120924
  Transmission Date: 20130627
  Serious: Yes (Hospitalization)
  Sender: FDA-Public Use
  Company Number: US-JNJFOC-20120711806

PATIENT
  Sex: Female

DRUGS (2)
  1. DOXORUBICIN HYDROCHLORIDE (DOXIL) [Suspect]
     Indication: OVARIAN CANCER
     Route: 042
     Dates: start: 20120705
  2. DOXORUBICIN HYDROCHLORIDE (DOXIL) [Suspect]
     Indication: OVARIAN CANCER
     Route: 042

REACTIONS (6)
  - Device related infection [Unknown]
  - Urinary tract infection [Unknown]
  - Pyrexia [Unknown]
  - Asthenia [Not Recovered/Not Resolved]
  - Oral pain [Not Recovered/Not Resolved]
  - Stomatitis [Not Recovered/Not Resolved]
